FAERS Safety Report 25337402 (Version 2)
Quarter: 2025Q2

REPORT INFORMATION
  Report Type: Report from Study
  Country: US (occurrence: US)
  Receive Date: 20250520
  Receipt Date: 20250521
  Transmission Date: 20250717
  Serious: Yes (Death)
  Sender: ABBVIE
  Company Number: US-ABBVIE-6289140

PATIENT
  Age: 87 Year
  Sex: Female

DRUGS (3)
  1. VENETOCLAX [Suspect]
     Active Substance: VENETOCLAX
     Indication: Myeloid leukaemia
     Dosage: 1 TABLET ON DAY 1?FORM STRENGTH: 700 MG
     Route: 048
  2. VENETOCLAX [Suspect]
     Active Substance: VENETOCLAX
     Indication: Myeloid leukaemia
     Dosage: 2 TABLETS ON DAY 2?DOSE: 100 MG?FORM STRENGTH: 700 MG
     Route: 048
  3. VENETOCLAX [Suspect]
     Active Substance: VENETOCLAX
     Indication: Myeloid leukaemia
     Dosage: TAKE 4 TABLET(S) BY MOUTH DAILY?DOSE: 100 MG?FORM STRENGTH: 700 MG
     Route: 048

REACTIONS (1)
  - Death [Fatal]
